FAERS Safety Report 5817296-1 (Version None)
Quarter: 2008Q3

REPORT INFORMATION
  Report Type: 
  Country: None (occurrence: None)
  Receive Date: 20080722
  Receipt Date: 20080715
  Transmission Date: 20090109
  Serious: Yes (Life-Threatening, Hospitalization)
  Sender: FDA-Public Use
  Company Number: B0529356A

PATIENT
  Age: 80 Year
  Sex: Female

DRUGS (11)
  1. VALACYCLOVIR HCL [Suspect]
     Indication: HERPES ZOSTER
     Dosage: 1G THREE TIMES PER DAY
     Route: 048
     Dates: start: 20080619, end: 20080623
  2. ACYCLOVIR [Suspect]
     Indication: MENINGOENCEPHALITIS HERPETIC
     Dosage: 700MG THREE TIMES PER DAY
     Route: 042
     Dates: start: 20080623, end: 20080627
  3. ZOLOFT [Concomitant]
     Dosage: 50MG IN THE MORNING
     Route: 048
  4. EQUANIL [Concomitant]
     Dosage: 250MG PER DAY
     Route: 048
     Dates: start: 20080619, end: 20080623
  5. MEMANTINE HCL [Concomitant]
     Dosage: 15MG PER DAY
     Route: 048
  6. ZESTRIL [Concomitant]
     Dosage: 20MG IN THE MORNING
     Route: 048
  7. HEMIGOXINE NATIVELLE [Concomitant]
     Dosage: .125MG IN THE MORNING
     Route: 048
  8. PLAVIX [Concomitant]
     Dosage: 75MG PER DAY
     Route: 048
  9. NITRODERM [Concomitant]
     Dosage: 5MG PER DAY
     Route: 023
  10. ACETAMINOPHEN [Concomitant]
     Dosage: 500MG THREE TIMES PER DAY
     Route: 065
  11. DUPHALAC [Concomitant]
     Dosage: 20G IN THE MORNING
     Route: 065

REACTIONS (11)
  - ABNORMAL BEHAVIOUR [None]
  - BLOOD CREATININE INCREASED [None]
  - CULTURE URINE POSITIVE [None]
  - DRUG LEVEL INCREASED [None]
  - ELECTROENCEPHALOGRAM ABNORMAL [None]
  - HYPOTONIA [None]
  - INCOHERENT [None]
  - PARTIAL SEIZURES [None]
  - RENAL FAILURE ACUTE [None]
  - SPEECH DISORDER [None]
  - TREMOR [None]
